FAERS Safety Report 9032474 (Version 1)
Quarter: 2013Q1

REPORT INFORMATION
  Report Type: Spontaneous
  Country: KR (occurrence: None)
  Receive Date: 20130108
  Receipt Date: 20130108
  Transmission Date: 20140127
  Serious: No
  Sender: FDA-Public Use
  Company Number: B0856285A

PATIENT
  Age: 9 Year
  Sex: Female

DRUGS (4)
  1. ETOPOSIDE [Suspect]
     Indication: LUNG NEOPLASM
  2. ALKERAN [Suspect]
     Indication: LUNG NEOPLASM
  3. CARBOPLATIN [Suspect]
     Indication: LUNG NEOPLASM
  4. IFOSFAMIDE [Concomitant]

REACTIONS (5)
  - Follicular thyroid cancer [None]
  - Metastases to lymph nodes [None]
  - Stem cell transplant [None]
  - Lung neoplasm malignant [None]
  - Neoplasm recurrence [None]
